FAERS Safety Report 8049259-2 (Version None)
Quarter: 2012Q1

REPORT INFORMATION
  Report Type: 
  Country: None (occurrence: None)
  Receive Date: 20120117
  Receipt Date: 20120110
  Transmission Date: 20120608
  Serious: Yes (Other)
  Sender: FDA-Public Use
  Company Number: US-ELI_LILLY_AND_COMPANY-US201107007118

PATIENT
  Age: 24 Year
  Sex: Male

DRUGS (3)
  1. CLONIDINE [Concomitant]
  2. STRATTERA [Suspect]
     Dosage: 80MG, DAILY
  3. STRATTERA [Suspect]
     Indication: ATTENTION DEFICIT/HYPERACTIVITY DISORDER
     Dosage: 80 MG, UNK
     Dates: start: 20090101

REACTIONS (5)
  - PETIT MAL EPILEPSY [None]
  - KNEE OPERATION [None]
  - CONVULSION [None]
  - SURGERY [None]
  - ANAESTHETIC COMPLICATION [None]
